FAERS Safety Report 22147366 (Version 1)
Quarter: 2023Q1

REPORT INFORMATION
  Report Type: Spontaneous
  Country: GB (occurrence: GB)
  Receive Date: 20230328
  Receipt Date: 20230328
  Transmission Date: 20230418
  Serious: Yes (Other)
  Sender: FDA-Public Use
  Company Number: GB-MHRA-MED-202303171346209930-MBRWQ

PATIENT
  Age: 87 Year
  Sex: Male

DRUGS (1)
  1. ARANESP [Suspect]
     Active Substance: DARBEPOETIN ALFA
     Indication: Nephrogenic anaemia
     Dosage: 30 MICROGRAM, QWK
     Route: 065

REACTIONS (4)
  - Lethargy [Unknown]
  - Disorientation [Unknown]
  - Vomiting [Unknown]
  - Diarrhoea [Unknown]
